FAERS Safety Report 19762384 (Version 2)
Quarter: 2021Q4

REPORT INFORMATION
  Report Type: Report from Study
  Country: JP (occurrence: JP)
  Receive Date: 20210827
  Receipt Date: 20211214
  Transmission Date: 20220303
  Serious: Yes (Hospitalization)
  Sender: FDA-Public Use
  Company Number: JP-ABBVIE-21P-087-4050532-00

PATIENT
  Age: 83 Year
  Sex: Male
  Weight: 42.4 kg

DRUGS (25)
  1. VENETOCLAX [Suspect]
     Active Substance: VENETOCLAX
     Indication: Acute myeloid leukaemia
     Route: 048
     Dates: start: 20181126, end: 20181126
  2. VENETOCLAX [Suspect]
     Active Substance: VENETOCLAX
     Route: 048
     Dates: start: 20181127, end: 20181127
  3. VENETOCLAX [Suspect]
     Active Substance: VENETOCLAX
     Route: 048
     Dates: start: 20181128, end: 20181221
  4. VENETOCLAX [Suspect]
     Active Substance: VENETOCLAX
     Route: 048
     Dates: start: 20181222, end: 20190106
  5. VENETOCLAX [Suspect]
     Active Substance: VENETOCLAX
     Route: 048
     Dates: start: 20190107, end: 20190121
  6. VENETOCLAX [Suspect]
     Active Substance: VENETOCLAX
     Route: 048
     Dates: start: 20190212, end: 20200915
  7. VENETOCLAX [Suspect]
     Active Substance: VENETOCLAX
     Route: 048
     Dates: start: 20210113, end: 20210821
  8. AZACITIDINE [Suspect]
     Active Substance: AZACITIDINE
     Indication: Acute myeloid leukaemia
     Dosage: DAYS 1-7 OF 28 DAY CYCLE
     Route: 058
     Dates: start: 20181126, end: 20190815
  9. AZACITIDINE [Suspect]
     Active Substance: AZACITIDINE
     Dosage: DAYS 1-7 OF 28 DAY CYCLE
     Route: 058
     Dates: start: 20190930, end: 20200112
  10. AZACITIDINE [Suspect]
     Active Substance: AZACITIDINE
     Dosage: DAYS 1-7 OF 28 DAY CYCLE
     Route: 058
     Dates: start: 20200304
  11. MIYA-BM [Concomitant]
     Active Substance: CLOSTRIDIUM BUTYRICUM SPORES STRAIN M-55
     Indication: Infection prophylaxis
     Route: 048
     Dates: start: 20181113
  12. HIRUDOID LOTION [Concomitant]
     Indication: Dry skin
     Dosage: DOSE; AP LIBITUM
     Route: 061
     Dates: start: 20181114
  13. CALONAL [Concomitant]
     Active Substance: ACETAMINOPHEN
     Indication: Back pain
     Route: 048
     Dates: start: 20190104
  14. KETOPROFEN [Concomitant]
     Active Substance: KETOPROFEN
     Indication: Sciatica
     Route: 062
     Dates: start: 20190515
  15. AMITIZA [Concomitant]
     Active Substance: LUBIPROSTONE
     Indication: Constipation
     Route: 048
     Dates: start: 20200701
  16. PANTETHINE [Concomitant]
     Active Substance: PANTETHINE
     Indication: Constipation
     Route: 041
     Dates: start: 20201003
  17. VONOPRAZAN FUMARATE [Concomitant]
     Active Substance: VONOPRAZAN FUMARATE
     Indication: Chronic gastritis
     Route: 048
     Dates: start: 20201003
  18. TORSEMIDE [Concomitant]
     Active Substance: TORSEMIDE
     Indication: Cardiovascular event prophylaxis
     Route: 048
     Dates: start: 20201111
  19. NOXAFIL [Concomitant]
     Active Substance: POSACONAZOLE
     Indication: Antifungal prophylaxis
     Route: 048
     Dates: start: 20201112, end: 20201117
  20. FUROSEMIDE [Concomitant]
     Active Substance: FUROSEMIDE
     Indication: Cardiovascular event prophylaxis
     Route: 048
     Dates: start: 20201202
  21. LOCOID CREAM 0.1% [Concomitant]
     Indication: Erythema
     Dosage: DOSE; Q.S OINTMENT
     Route: 061
     Dates: start: 20201019
  22. UREA CREAM 105 [NICHIIKO] [Concomitant]
     Indication: Dry skin
     Dosage: DOSE; OINTMENT
     Route: 061
     Dates: start: 20210204
  23. RAMOSETRON HYDROCHLORIDE [Concomitant]
     Active Substance: RAMOSETRON HYDROCHLORIDE
     Indication: Prophylaxis of nausea and vomiting
     Route: 048
     Dates: start: 20210811
  24. DIAMOX SEQUELS [Concomitant]
     Active Substance: ACETAZOLAMIDE
     Indication: Prophylaxis
     Route: 048
     Dates: start: 20181125, end: 20181201
  25. YD SOLITA-T NO1 [Concomitant]
     Indication: Prophylaxis
     Route: 042
     Dates: start: 20181125, end: 20181201

REACTIONS (1)
  - Enterocolitis [Not Recovered/Not Resolved]

NARRATIVE: CASE EVENT DATE: 20210818
